FAERS Safety Report 19283219 (Version 1)
Quarter: 2021Q2

REPORT INFORMATION
  Report Type: Spontaneous
  Country: US (occurrence: US)
  Receive Date: 20210521
  Receipt Date: 20210521
  Transmission Date: 20210717
  Serious: Yes (Disabling)
  Sender: FDA-Public Use
  Company Number: None

PATIENT
  Age: 57 Year
  Sex: Female
  Weight: 81 kg

DRUGS (16)
  1. VITAMIN E [Concomitant]
     Active Substance: .ALPHA.-TOCOPHEROL
  2. ATOVASTATIN [Concomitant]
     Active Substance: ATORVASTATIN
  3. REMICADE [Concomitant]
     Active Substance: INFLIXIMAB
  4. VITAMIN D3 [Concomitant]
     Active Substance: CHOLECALCIFEROL
  5. VYVANSE [Concomitant]
     Active Substance: LISDEXAMFETAMINE DIMESYLATE
  6. MONTALUKAST 10MG [Concomitant]
     Active Substance: MONTELUKAST SODIUM
  7. DESVENLAFAXINE. [Concomitant]
     Active Substance: DESVENLAFAXINE
  8. PROLIA [Concomitant]
     Active Substance: DENOSUMAB
  9. CALCIUM/VITAMIN D 800 MG/1000 MG [Concomitant]
  10. VITAMIN B12 [Concomitant]
     Active Substance: CYANOCOBALAMIN
  11. FAMOTIDINE. [Concomitant]
     Active Substance: FAMOTIDINE
  12. PREGABALIN 75 MG CAP NOVA NDC: 72205?0013?90 [Suspect]
     Active Substance: PREGABALIN
     Indication: PROCEDURAL PAIN
     Route: 048
     Dates: start: 20210512
  13. VALSARTAN. [Concomitant]
     Active Substance: VALSARTAN
  14. HCTZ [Concomitant]
     Active Substance: HYDROCHLOROTHIAZIDE
  15. LORAZEPAM. [Concomitant]
     Active Substance: LORAZEPAM
  16. FISH OIL [Concomitant]
     Active Substance: FISH OIL

REACTIONS (3)
  - Myoclonus [None]
  - Eye movement disorder [None]
  - Photopsia [None]

NARRATIVE: CASE EVENT DATE: 20210514
